FAERS Safety Report 8445518-X (Version None)
Quarter: 2012Q2

REPORT INFORMATION
  Report Type: 
  Country: None (occurrence: None)
  Receive Date: 20120618
  Receipt Date: 20120611
  Transmission Date: 20120825
  Serious: Yes (Other)
  Sender: FDA-Public Use
  Company Number: US-MERCK-1206USA01964

PATIENT
  Sex: Female

DRUGS (1)
  1. JANUVIA [Suspect]
     Indication: DIABETES MELLITUS
     Route: 048

REACTIONS (1)
  - MYOCARDIAL INFARCTION [None]
